FAERS Safety Report 7259715-2 (Version None)
Quarter: 2011Q1

REPORT INFORMATION
  Report Type: 
  Country: None (occurrence: None)
  Receive Date: 20110130
  Receipt Date: 20100909
  Transmission Date: 20110831
  Serious: No
  Sender: FDA-Public Use
  Company Number: US-ABBOTT-10P-163-0659777-00

PATIENT
  Age: 55 Year
  Sex: Female

DRUGS (4)
  1. TRAVATAM [Concomitant]
     Indication: INTRAOCULAR PRESSURE TEST
  2. IMURAN [Concomitant]
     Indication: CROHN'S DISEASE
  3. TIMOLOL [Concomitant]
     Indication: INTRAOCULAR PRESSURE TEST
  4. HUMIRA [Suspect]
     Indication: CROHN'S DISEASE
     Dates: start: 20090801

REACTIONS (3)
  - DEVICE MALFUNCTION [None]
  - INJECTION SITE REACTION [None]
  - INJECTION SITE URTICARIA [None]
